FAERS Safety Report 22165453 (Version 1)
Quarter: 2023Q2

REPORT INFORMATION
  Report Type: Report from Study
  Country: CN (occurrence: CN)
  Receive Date: 20230403
  Receipt Date: 20230403
  Transmission Date: 20230722
  Serious: Yes (Life-Threatening, Hospitalization)
  Sender: FDA-Public Use
  Company Number: CN-ELI_LILLY_AND_COMPANY-CN202208015946

PATIENT
  Age: 71 Year
  Sex: Male

DRUGS (25)
  1. PEMETREXED [Suspect]
     Active Substance: PEMETREXED
     Indication: Non-small cell lung cancer stage II
     Dosage: 500 MG/M2, EVERY THREE WEEKS (Q3W)
     Route: 042
     Dates: start: 20220705
  2. PEMETREXED [Suspect]
     Active Substance: PEMETREXED
     Indication: Non-small cell lung cancer stage III
     Dosage: DOSE REDUCED , EVERY THREE WEEKS (Q3W)
     Route: 042
  3. CARBOPLATIN [Concomitant]
     Active Substance: CARBOPLATIN
     Indication: Non-small cell lung cancer stage II
     Dosage: DOSE REDUCED, EVERY THREE WEEKS
     Route: 042
     Dates: start: 20220705
  4. CARBOPLATIN [Concomitant]
     Active Substance: CARBOPLATIN
     Indication: Non-small cell lung cancer stage III
     Dosage: 5 AREAD UNDER THE CURVE (AUC), EVERY THREE WEEKS
     Route: 042
  5. DURVALUMAB [Concomitant]
     Active Substance: DURVALUMAB
     Indication: Non-small cell lung cancer stage II
     Dosage: 1500 MG, EVERY THREE WEEKS
     Route: 042
     Dates: start: 20220705
  6. DURVALUMAB [Concomitant]
     Active Substance: DURVALUMAB
     Indication: Non-small cell lung cancer stage III
  7. DEXAMETHASONE ACETATE [Concomitant]
     Active Substance: DEXAMETHASONE ACETATE
     Indication: Allergy prophylaxis
     Dosage: 3.75 MG, BID
     Route: 048
     Dates: start: 20220704, end: 20220704
  8. DEXAMETHASONE ACETATE [Concomitant]
     Active Substance: DEXAMETHASONE ACETATE
     Dosage: 3.75 MG, BID
     Route: 048
     Dates: start: 20220726, end: 20220726
  9. LEVALBUTEROL HYDROCHLORIDE [Concomitant]
     Active Substance: LEVALBUTEROL HYDROCHLORIDE
     Indication: Productive cough
     Dosage: 6 ML, QID
     Route: 055
     Dates: start: 20220705, end: 20220706
  10. LEVALBUTEROL HYDROCHLORIDE [Concomitant]
     Active Substance: LEVALBUTEROL HYDROCHLORIDE
     Dosage: 6 ML, QID
     Route: 055
     Dates: start: 20220727, end: 20220728
  11. SODIUM POTASSIUM MAGNESIUM CALCIUM AND GLUCOS [Concomitant]
     Indication: Nutritional supplementation
     Dosage: 500 ML, DAILY
     Route: 042
     Dates: start: 20220705, end: 20220705
  12. SODIUM POTASSIUM MAGNESIUM CALCIUM AND GLUCOS [Concomitant]
     Dosage: 500 ML, DAILY
     Route: 042
     Dates: start: 20220727, end: 20220727
  13. DOLASETRON MESILATE [Concomitant]
     Indication: Prophylaxis of nausea and vomiting
     Dosage: 100 MG, DAILY
     Route: 042
     Dates: start: 20220705, end: 20220705
  14. DOLASETRON MESILATE [Concomitant]
     Dosage: 100 MG, DAILY
     Route: 042
     Dates: start: 20220727, end: 20220727
  15. APREPITANT [Concomitant]
     Active Substance: APREPITANT
     Indication: Prophylaxis of nausea and vomiting
     Dosage: 1 DOSAGE FORM, DAILY
     Route: 048
     Dates: start: 20220706, end: 20220707
  16. APREPITANT [Concomitant]
     Active Substance: APREPITANT
     Dosage: 1 DOSAGE FORM, DAILY
     Route: 048
     Dates: start: 20220727, end: 20220727
  17. PEGYLATED GRANULOCYTE COLONY STIMULATING FACT [Concomitant]
     Indication: Prophylaxis
     Dosage: 6 MG, DAILY
     Route: 058
     Dates: start: 20220706, end: 20220706
  18. PEGYLATED GRANULOCYTE COLONY STIMULATING FACT [Concomitant]
     Dosage: 6 MG, DAILY
     Route: 058
     Dates: start: 20220727, end: 20220727
  19. ESOMEPRAZOLE SODIUM [Concomitant]
     Active Substance: ESOMEPRAZOLE SODIUM
     Indication: Prophylaxis
     Dosage: 40 MG, BID
     Route: 042
     Dates: start: 20220727, end: 20220727
  20. ESOMEPRAZOLE SODIUM [Concomitant]
     Active Substance: ESOMEPRAZOLE SODIUM
     Dosage: 20 MG, BID
     Route: 042
     Dates: start: 20220801, end: 20220801
  21. ZUDAN [Concomitant]
     Indication: Prophylaxis of nausea and vomiting
     Dosage: 8 MG, DAILY
     Route: 048
     Dates: start: 20220707, end: 20220713
  22. ZUDAN [Concomitant]
     Dosage: 8 MG, DAILY
     Route: 048
     Dates: start: 20220729, end: 20220804
  23. VITAMIN C [Concomitant]
     Active Substance: ASCORBIC ACID
     Indication: Nutritional supplementation
     Dosage: 780 MG, DAILY
     Route: 048
     Dates: start: 20220701
  24. FOLIC ACID\IRON [Concomitant]
     Active Substance: FOLIC ACID\IRON
     Indication: Nutritional supplementation
     Dosage: 500 MG, DAILY
     Route: 048
     Dates: start: 20220701
  25. ESOMEPRAZOLE MAGNESIUM [Concomitant]
     Active Substance: ESOMEPRAZOLE MAGNESIUM
     Indication: Prophylaxis
     Dosage: 40 MG, DAILY
     Route: 048
     Dates: start: 20220729, end: 20220804

REACTIONS (3)
  - Neutrophil count decreased [Recovered/Resolved]
  - White blood cell count decreased [Recovered/Resolved]
  - Abdominal pain upper [Recovered/Resolved]

NARRATIVE: CASE EVENT DATE: 20220802
